FAERS Safety Report 5717689-7 (Version None)
Quarter: 2008Q2

REPORT INFORMATION
  Report Type: 
  Country: None (occurrence: None)
  Receive Date: 20080425
  Receipt Date: 20080411
  Transmission Date: 20081010
  Serious: Yes (Other)
  Sender: FDA-Public Use
  Company Number: US-AMGEN-STX272272

PATIENT
  Sex: Female
  Weight: 101 kg

DRUGS (8)
  1. ENBREL [Suspect]
     Indication: JUVENILE ARTHRITIS
     Route: 058
     Dates: start: 20070609
  2. PLAQUENIL [Concomitant]
     Indication: JUVENILE ARTHRITIS
     Route: 065
     Dates: start: 20060101
  3. METHOTREXATE [Concomitant]
     Indication: JUVENILE ARTHRITIS
     Route: 065
     Dates: start: 20051014
  4. PREDNISONE [Concomitant]
     Dates: start: 20051001
  5. NAPROSYN [Concomitant]
     Dates: start: 20051001
  6. LEUCOVORIN CALCIUM [Concomitant]
     Dates: start: 20060123
  7. CALCIUM [Concomitant]
     Dates: start: 20051001
  8. VITAMIN D [Concomitant]
     Dates: start: 20051001

REACTIONS (6)
  - BLINDNESS TRANSIENT [None]
  - CHEST PAIN [None]
  - DIZZINESS [None]
  - DYSPNOEA [None]
  - FLUSHING [None]
  - VISION BLURRED [None]
